FAERS Safety Report 7214231-9 (Version None)
Quarter: 2011Q1

REPORT INFORMATION
  Report Type: 
  Country: None (occurrence: None)
  Receive Date: 20110107
  Receipt Date: 20101227
  Transmission Date: 20110831
  Serious: Yes (Hospitalization)
  Sender: FDA-Public Use
  Company Number: FR-KINGPHARMUSA00001-K201001027

PATIENT
  Age: 80 Year
  Sex: Male

DRUGS (14)
  1. TAHOR [Concomitant]
     Dosage: 20 MG, UNK
  2. PREVISCAN [Concomitant]
     Dosage: 20 MG, UNK
  3. FLUTICASONE W/SALMETEROL [Concomitant]
     Dosage: 250 MCG, UNK
  4. CARDENSIEL [Suspect]
     Dosage: 7.5 MG, QD
  5. SPIRONOLACTONE [Suspect]
     Dosage: 25 MG, QD
     Route: 048
     Dates: end: 20100708
  6. PREVISCAN [Concomitant]
     Dosage: UNK, 3/4 TABLET QD
  7. TIOTROPIUM BROMIDE [Concomitant]
     Dosage: UNK
  8. FUROSEMIDE [Concomitant]
     Dosage: 40 MG, UNK
  9. IVABRADINE [Suspect]
     Dosage: 5 MG, BID
     Route: 048
     Dates: start: 20100401, end: 20100708
  10. ALTACE [Suspect]
     Dosage: 5 MG, QD
     Route: 048
  11. CLARITIN [Concomitant]
     Dosage: 10 MG, UNK
  12. CARDENSIEL [Suspect]
     Dosage: 2.5 MG, QD
     Route: 048
     Dates: start: 20100401, end: 20100101
  13. LACTULOSE [Concomitant]
     Dosage: 2 DF, UNK
  14. DOLIPRANE [Concomitant]
     Dosage: UNK

REACTIONS (4)
  - CONDUCTION DISORDER [None]
  - HYPERKALAEMIA [None]
  - ATRIOVENTRICULAR BLOCK COMPLETE [None]
  - RENAL FAILURE [None]
